FAERS Safety Report 9386325 (Version 5)
Quarter: 2014Q1

REPORT INFORMATION
  Report Type: Spontaneous
  Country: CA (occurrence: CA)
  Receive Date: 20130708
  Receipt Date: 20140128
  Transmission Date: 20141002
  Serious: Yes (Life-Threatening, Hospitalization, Other)
  Sender: FDA-Public Use
  Company Number: CA-AMGEN-CANSP2013047449

PATIENT
  Age: 88 Year
  Sex: Female
  Weight: 60 kg

DRUGS (32)
  1. PROLIA [Suspect]
     Indication: OSTEOPOROSIS POSTMENOPAUSAL
     Dosage: 60 MG, Q6MO
     Route: 058
     Dates: start: 20130620
  2. LORAZEPAM [Concomitant]
     Dosage: UNK UNK, AS NECESSARY
     Route: 065
  3. LASIX                              /00032601/ [Concomitant]
     Dosage: 20 MG, QD
     Route: 065
  4. TECTA [Concomitant]
     Dosage: 40 MG, QD
     Route: 065
  5. ALLOPURINOL [Concomitant]
     Route: 065
  6. DIGOXIN [Concomitant]
     Dosage: 0.062 MG, QD
     Route: 065
  7. IRBESARTAN [Concomitant]
     Dosage: 75 MG, QD
     Route: 065
  8. DIAMICRON [Concomitant]
     Dosage: 60 MG, QD
     Route: 065
  9. CRESTOR [Concomitant]
     Dosage: 10 MG, UNK
     Route: 065
     Dates: start: 201304, end: 201304
  10. COREG [Concomitant]
     Dosage: 6.25 MG, BID
     Route: 065
  11. GABAPENTIN [Concomitant]
     Dosage: 100 MG, TID
     Route: 065
  12. SYMBICORT [Concomitant]
     Dosage: UNK UNK, AS NECESSARY
     Route: 065
  13. SPIRIVA [Concomitant]
     Dosage: UNK UNK, AS NECESSARY
     Route: 065
  14. VENTOLIN                           /00139501/ [Concomitant]
     Dosage: UNK UNK, AS NECESSARY
     Route: 065
  15. ALDACTONE                          /00006201/ [Concomitant]
  16. ATIVAN [Concomitant]
  17. AVAPRO [Concomitant]
  18. BENTYLOL [Concomitant]
  19. BUSCOPAN [Concomitant]
  20. CARVEDILOL [Concomitant]
  21. CES [Concomitant]
  22. CHOLECALCIFEROL [Concomitant]
  23. IMOVANE [Concomitant]
  24. INFUFER [Concomitant]
     Route: 030
  25. LOVENOX [Concomitant]
     Route: 058
  26. NITRO-DUR [Concomitant]
     Dosage: 0.4 MG, QH
  27. PREDNISONE [Concomitant]
  28. PREMARIN [Concomitant]
  29. SOFRACORT [Concomitant]
  30. TOLOXIN                            /00017701/ [Concomitant]
  31. TRAMACET [Concomitant]
  32. ZYLOPRIM [Concomitant]

REACTIONS (17)
  - Bronchospasm [Not Recovered/Not Resolved]
  - Acute respiratory failure [Recovered/Resolved]
  - Hypersensitivity [Recovered/Resolved]
  - Dyspnoea [Recovered/Resolved]
  - Chest pain [Recovered/Resolved]
  - Hypoxia [Not Recovered/Not Resolved]
  - Wheezing [Not Recovered/Not Resolved]
  - Respiratory arrest [Recovered/Resolved]
  - Speech disorder [Recovered/Resolved]
  - Atrial fibrillation [Recovered/Resolved]
  - Pyrexia [Recovered/Resolved]
  - Troponin increased [Recovered/Resolved]
  - Malaise [Recovered/Resolved]
  - Anaphylactic reaction [Recovered/Resolved]
  - Drug hypersensitivity [Unknown]
  - Muscular weakness [Not Recovered/Not Resolved]
  - Asthenia [Recovered/Resolved]
